FAERS Safety Report 5319132-9 (Version None)
Quarter: 2007Q2

REPORT INFORMATION
  Report Type: 
  Country: None (occurrence: None)
  Receive Date: 20070508
  Receipt Date: 20070503
  Transmission Date: 20071010
  Serious: Yes (Hospitalization)
  Sender: FDA-Public Use
  Company Number: FRWYE574903MAY07

PATIENT
  Age: 77 Year
  Sex: Female
  Weight: 56 kg

DRUGS (6)
  1. EFFEXOR XR [Suspect]
     Indication: DEPRESSION
     Dosage: 75 MG DAILY
     Route: 048
     Dates: start: 20070206, end: 20070220
  2. OLMETEC [Suspect]
     Route: 048
     Dates: end: 20070220
  3. LEXOMIL [Concomitant]
     Dosage: UNKNOWN
     Route: 048
  4. VASTEN [Concomitant]
     Dosage: UNKNOWN
     Route: 048
  5. HEXAQUINE [Concomitant]
     Dosage: UNKNOWN
  6. EUPRESSYL [Suspect]
     Route: 048
     Dates: end: 20070220

REACTIONS (2)
  - FALL [None]
  - ORTHOSTATIC HYPOTENSION [None]
